FAERS Safety Report 23580189 (Version 1)
Quarter: 2024Q1

REPORT INFORMATION
  Report Type: Spontaneous
  Country: US (occurrence: None)
  Receive Date: 20240228
  Receipt Date: 20240228
  Transmission Date: 20240409
  Serious: No
  Sender: FDA-Public Use
  Company Number: None

PATIENT
  Age: 45 Year
  Sex: Female
  Weight: 65.7 kg

DRUGS (4)
  1. PLENVU [Suspect]
     Active Substance: ASCORBIC ACID\POLYETHYLENE GLYCOL 3350\POTASSIUM CHLORIDE\SODIUM ASCORBATE\SODIUM CHLORIDE\SODIUM SU
     Indication: Bowel preparation
     Dosage: 2 POUCHES ORAL
     Route: 048
     Dates: start: 20240226, end: 20240227
  2. PLENVU [Suspect]
     Active Substance: ASCORBIC ACID\POLYETHYLENE GLYCOL 3350\POTASSIUM CHLORIDE\SODIUM ASCORBATE\SODIUM CHLORIDE\SODIUM SU
     Indication: Colonoscopy
  3. CLARITIN [Concomitant]
     Active Substance: LORATADINE
  4. Centrum Women^s Multivitamin [Concomitant]

REACTIONS (5)
  - Nausea [None]
  - Vomiting [None]
  - Headache [None]
  - Malaise [None]
  - Haematemesis [None]

NARRATIVE: CASE EVENT DATE: 20240227
